FAERS Safety Report 19103375 (Version 3)
Quarter: 2021Q2

REPORT INFORMATION
  Report Type: Report from Study
  Country: US (occurrence: US)
  Receive Date: 20210407
  Receipt Date: 20210608
  Transmission Date: 20210717
  Serious: Yes (Hospitalization, Other)
  Sender: FDA-Public Use
  Company Number: US-ROCHE-2799365

PATIENT
  Age: 79 Year
  Sex: Female
  Weight: 39.7 kg

DRUGS (8)
  1. BACTRIM [Concomitant]
     Active Substance: SULFAMETHOXAZOLE\TRIMETHOPRIM
  2. PREDNISONE. [Concomitant]
     Active Substance: PREDNISONE
  3. METHYLPREDNISOLONE. [Concomitant]
     Active Substance: METHYLPREDNISOLONE
  4. LEUCOVORIN CALCIUM. [Suspect]
     Active Substance: LEUCOVORIN CALCIUM
     Indication: COLON CANCER
     Dosage: DATE OF LAST DOSE RECEIVED: 05/FEB/2020
     Route: 042
     Dates: start: 20200108
  5. ATEZOLIZUMAB. [Suspect]
     Active Substance: ATEZOLIZUMAB
     Indication: COLON CANCER
     Dosage: DATE OF LAST DOSE RECEIVED: 05/FEB/2020
     Route: 042
     Dates: start: 20200108
  6. IMODIUM [Concomitant]
     Active Substance: LOPERAMIDE HYDROCHLORIDE
  7. ELOXATIN [Suspect]
     Active Substance: OXALIPLATIN
     Indication: COLON CANCER
     Dosage: DATE OF LAST DOSE RECEIVED: 05/FEB/2020
     Route: 042
     Dates: start: 20200108
  8. 5?FLUOROURACIL [Suspect]
     Active Substance: FLUOROURACIL
     Indication: COLON CANCER
     Dosage: DATE OF LAST DOSE RECEIVED: 05/FEB/2020
     Route: 042
     Dates: start: 20200108

REACTIONS (2)
  - Gastroenteritis viral [Recovered/Resolved]
  - Colitis [Unknown]

NARRATIVE: CASE EVENT DATE: 20200205
